FAERS Safety Report 6149564-0 (Version None)
Quarter: 2009Q2

REPORT INFORMATION
  Report Type: 
  Country: None (occurrence: None)
  Receive Date: 20090409
  Receipt Date: 20090331
  Transmission Date: 20091009
  Serious: Yes (Other)
  Sender: FDA-Public Use
  Company Number: PHHY2009DE06188

PATIENT
  Sex: Female
  Weight: 97 kg

DRUGS (3)
  1. DIOVAN HCT [Suspect]
     Indication: POLYURIA
     Dosage: FIRST HALF OF TABLET AT 11:00 AM (0-0-1/2)
     Route: 048
     Dates: start: 20090119, end: 20090119
  2. DIOVAN HCT [Suspect]
     Indication: HYPERTENSION
  3. BISOPROLOL FUMARATE [Concomitant]

REACTIONS (5)
  - BLISTER [None]
  - ERYTHEMA [None]
  - FEELING HOT [None]
  - PYREXIA [None]
  - SUNBURN [None]
